FAERS Safety Report 6849161-5 (Version None)
Quarter: 2010Q3

REPORT INFORMATION
  Report Type: 
  Country: None (occurrence: None)
  Receive Date: 20100716
  Receipt Date: 20100706
  Transmission Date: 20110219
  Serious: Yes (Other)
  Sender: FDA-Public Use
  Company Number: PHHY2010US25144

PATIENT
  Sex: Male

DRUGS (2)
  1. EXJADE [Suspect]
     Dosage: 500 MG, BID
     Route: 048
     Dates: start: 20090403, end: 20100501
  2. EXJADE [Suspect]
     Dosage: 500 MG, BID
     Route: 048
     Dates: start: 20100628

REACTIONS (5)
  - ABDOMINAL DISTENSION [None]
  - DIARRHOEA [None]
  - NAUSEA [None]
  - ORAL HERPES [None]
  - ORAL PAIN [None]
